FAERS Safety Report 17203299 (Version 1)
Quarter: 2019Q4

REPORT INFORMATION
  Report Type: Spontaneous
  Country: US (occurrence: US)
  Receive Date: 20191226
  Receipt Date: 20191226
  Transmission Date: 20200122
  Serious: No
  Sender: FDA-Public Use
  Company Number: US-UPSHER-SMITH LABORATORIES, LLC-2019USL00664

PATIENT
  Age: 71 Year
  Sex: Female
  Weight: 95.24 kg

DRUGS (9)
  1. KLOR-CON M [Suspect]
     Active Substance: POTASSIUM CHLORIDE
     Dosage: 20 MEQ, 2X/DAY (WITH ONE ^OLD^ 20MEQ PILL)
     Route: 048
     Dates: start: 201908, end: 201908
  2. KLOR-CON M [Suspect]
     Active Substance: POTASSIUM CHLORIDE
     Dosage: 10 MEQ, 4X/DAY (WITH 1/2 OF ONE ^OLD^ 20MEQ PILL)
     Route: 048
     Dates: start: 201908, end: 201908
  3. INDAPAMIDE. [Concomitant]
     Active Substance: INDAPAMIDE
  4. KLOR-CON M [Suspect]
     Active Substance: POTASSIUM CHLORIDE
     Dosage: 10 MEQ MULTIPLE TIMES PER DAY UNTIL DOSES COMPLETED
     Route: 048
     Dates: start: 20190822
  5. OMEPRAZOLE. [Concomitant]
     Active Substance: OMEPRAZOLE
  6. MULTIVITAMIN [Concomitant]
     Active Substance: VITAMINS
  7. WARFARIN [Concomitant]
     Active Substance: WARFARIN
  8. KLOR-CON M [Suspect]
     Active Substance: POTASSIUM CHLORIDE
     Indication: BLOOD POTASSIUM DECREASED
     Dosage: 40 MEQ, 2X/DAY
     Route: 048
     Dates: start: 201908, end: 201908
  9. SPIRONOLACTONE. [Concomitant]
     Active Substance: SPIRONOLACTONE

REACTIONS (3)
  - Drug ineffective [Unknown]
  - Muscle spasms [Unknown]
  - Diarrhoea [Recovering/Resolving]

NARRATIVE: CASE EVENT DATE: 201908
